FAERS Safety Report 4581090-2 (Version None)
Quarter: 2005Q1

REPORT INFORMATION
  Report Type: 
  Country: None (occurrence: None)
  Receive Date: 20050214
  Receipt Date: 20040803
  Transmission Date: 20050727
  Serious: No
  Sender: FDA-Public Use
  Company Number: US-GLAXOSMITHKLINE-A0520772A

PATIENT
  Age: 2 Year
  Sex: Female

DRUGS (1)
  1. LAMICTAL [Suspect]
     Indication: PARTIAL SEIZURES
     Dosage: 2.5MG TWICE PER DAY
     Route: 048
     Dates: start: 20000801, end: 20031101

REACTIONS (6)
  - AFFECT LABILITY [None]
  - COGNITIVE DISORDER [None]
  - DRUG INEFFECTIVE [None]
  - DYSPHEMIA [None]
  - MEMORY IMPAIRMENT [None]
  - SPEECH DISORDER [None]
